FAERS Safety Report 9988014 (Version 1)
Quarter: 2014Q1

REPORT INFORMATION
  Report Type: Report from Study
  Country: US (occurrence: US)
  Receive Date: 20140307
  Receipt Date: 20140307
  Transmission Date: 20141002
  Serious: Yes (Hospitalization)
  Sender: FDA-Public Use
  Company Number: US-ABBVIE-14P-163-1208915-00

PATIENT
  Sex: Female

DRUGS (13)
  1. HUMIRA [Suspect]
     Indication: RHEUMATOID ARTHRITIS
     Dates: start: 200806
  2. METHOTREXATE [Concomitant]
     Indication: RHEUMATOID ARTHRITIS
  3. PALQUENIL [Concomitant]
     Indication: RHEUMATOID ARTHRITIS
  4. CALCIUM [Concomitant]
     Indication: PRODUCT USED FOR UNKNOWN INDICATION
     Dosage: DAILY
  5. OMEPRAZOLE [Concomitant]
     Indication: GASTROOESOPHAGEAL REFLUX DISEASE
  6. ACTIVAR [Concomitant]
     Indication: HERPES ZOSTER
  7. FOLIC ACID [Concomitant]
     Indication: PRODUCT USED FOR UNKNOWN INDICATION
  8. TOPRAMATE [Concomitant]
     Indication: MIGRAINE PROPHYLAXIS
     Dosage: 25 MF EVERY AT BEDTIME
  9. METOPROLOL [Concomitant]
     Indication: HYPERTENSION
  10. GABOPENTIN [Concomitant]
     Indication: NEURALGIA
  11. MELOXICAM [Concomitant]
     Indication: RHEUMATOID ARTHRITIS
  12. VITAMIN D3 [Concomitant]
     Indication: PRODUCT USED FOR UNKNOWN INDICATION
  13. FERROUS SULFATE [Concomitant]
     Indication: ANAEMIA

REACTIONS (6)
  - Intestinal obstruction [Unknown]
  - Constipation [Unknown]
  - Abdominal pain [Unknown]
  - Localised infection [Unknown]
  - Pneumonia [Unknown]
  - Rash macular [Not Recovered/Not Resolved]
